FAERS Safety Report 6839620-3 (Version None)
Quarter: 2010Q3

REPORT INFORMATION
  Report Type: 
  Country: None (occurrence: None)
  Receive Date: 20100714
  Receipt Date: 20100702
  Transmission Date: 20110219
  Serious: Yes (Hospitalization)
  Sender: FDA-Public Use
  Company Number: US-ELI_LILLY_AND_COMPANY-US201005006927

PATIENT
  Sex: Female
  Weight: 133.33 kg

DRUGS (59)
  1. BYETTA [Suspect]
     Indication: TYPE 2 DIABETES MELLITUS
     Dosage: 5 UG, 2/D
     Route: 058
     Dates: start: 20100208, end: 20100517
  2. BYETTA [Suspect]
     Dosage: 10 UG, 2/D
     Route: 058
     Dates: start: 20100517
  3. METFORMIN HCL [Concomitant]
     Indication: TYPE 2 DIABETES MELLITUS
     Dosage: 500 MG, EACH EVENING
     Dates: start: 20100522
  4. ATENOLOL [Concomitant]
     Indication: BLOOD PRESSURE INCREASED
     Dosage: 4 MG, UNK
     Dates: start: 20010629, end: 20100501
  5. ATENOLOL [Concomitant]
     Dosage: 4 MG, UNK
     Dates: start: 20100501
  6. ATENOLOL [Concomitant]
     Dosage: 100 MG, EACH EVENING
     Route: 048
  7. MICARDIS [Concomitant]
     Dosage: 40 MG, UNK
     Dates: end: 20100501
  8. MICARDIS [Concomitant]
     Dosage: 40 MG, UNK
     Dates: start: 20100501
  9. FUROSEMIDE [Concomitant]
     Dosage: 40 MG, UNK
     Route: 048
     Dates: end: 20100501
  10. FUROSEMIDE [Concomitant]
     Dosage: 40 MG, UNK
     Route: 048
     Dates: start: 20100501
  11. AMLODIPINE [Concomitant]
     Dosage: 10 MG, UNK
     Dates: end: 20100501
  12. AMLODIPINE [Concomitant]
     Dosage: 10 MG, UNK
     Dates: start: 20100501
  13. VITAMIN E /001105/ [Concomitant]
     Dosage: 400 IU, DAILY (1/D)
     Route: 048
     Dates: start: 20010629
  14. VOLTAREN [Concomitant]
     Dosage: 75 MG, 2/D
     Route: 048
     Dates: start: 20030225
  15. AVANDAMET [Concomitant]
     Dosage: 4 D/F, DAILY (1/D)
     Route: 048
     Dates: start: 20030924
  16. METFORMIN HCL [Concomitant]
     Dosage: 2000 MG, DAILY (1/D)
     Dates: start: 20090928
  17. SPIRONOLACTONE [Concomitant]
     Dosage: 25 MG, EACH MORNING
     Route: 048
     Dates: start: 20090615
  18. HYDROCHLOROTHIAZIDE [Concomitant]
     Dosage: 25 MG, EACH MORNING
     Route: 048
     Dates: start: 20010629, end: 20010905
  19. HYDROCHLOROTHIAZIDE [Concomitant]
     Dosage: 50 MG, EACH MORNING
     Route: 048
     Dates: start: 20010905
  20. ACCUPRIL [Concomitant]
     Dosage: 20 MG, DAILY (1/D)
     Route: 048
     Dates: start: 20010629, end: 20010717
  21. ACCUPRIL [Concomitant]
     Dosage: 40 MG, DAILY (1/D)
     Route: 048
     Dates: start: 20010717, end: 20010824
  22. ACCUPRIL [Concomitant]
     Dosage: 20 MG, DAILY (1/D)
     Route: 048
     Dates: start: 20010824
  23. MAVIK [Concomitant]
     Dosage: 4 MG, DAILY (1/D)
     Route: 048
     Dates: start: 20020225, end: 20020318
  24. MAVIK [Concomitant]
     Dosage: 4 MG, 2/D
     Route: 048
     Dates: start: 20020318, end: 20020415
  25. MAVIK [Concomitant]
     Dosage: 4 MG, EACH MORNING
     Route: 048
     Dates: start: 20020415, end: 20021002
  26. MAVIK [Concomitant]
     Dosage: 4 MG, 2/D
     Route: 048
     Dates: start: 20021002
  27. LISINOPRIL [Concomitant]
     Dosage: 40 MG, 2/D
     Route: 048
     Dates: start: 20030924, end: 20031209
  28. LISINOPRIL [Concomitant]
     Dosage: 40 MG, DAILY (1/D)
     Route: 048
     Dates: start: 20031209, end: 20040719
  29. LISINOPRIL [Concomitant]
     Dosage: 40 MG, 2/D
     Route: 048
     Dates: start: 20040719, end: 20060706
  30. LISINOPRIL [Concomitant]
     Dosage: 40 MG, DAILY (1/D)
     Route: 048
     Dates: start: 20060706, end: 20070424
  31. LISINOPRIL [Concomitant]
     Dosage: 40 MG, 2/D
     Route: 048
     Dates: start: 20070424, end: 20070604
  32. LISINOPRIL [Concomitant]
     Dosage: 20 MG, DAILY (1/D)
     Route: 048
     Dates: start: 20070604, end: 20070830
  33. LISINOPRIL [Concomitant]
     Dosage: 40 MG, DAILY (1/D)
     Route: 048
     Dates: start: 20070830, end: 20080114
  34. LISINOPRIL [Concomitant]
     Dosage: 40 MG, 2/D
     Route: 048
     Dates: start: 20080114
  35. ACTOS /SCH/ [Concomitant]
     Dosage: 30 MG, DAILY (1/D)
     Route: 048
     Dates: start: 20031014, end: 20041004
  36. ACTOS /SCH/ [Concomitant]
     Dosage: 45 MG, DAILY (1/D)
     Route: 048
     Dates: start: 20041004, end: 20060430
  37. ACTOS /SCH/ [Concomitant]
     Dosage: 30 MG, DAILY (1/D)
     Route: 048
     Dates: start: 20060430, end: 20080825
  38. ACTOS /SCH/ [Concomitant]
     Dosage: 45 MG, DAILY (1/D)
     Route: 048
     Dates: start: 20080825, end: 20090330
  39. ACTOS /SCH/ [Concomitant]
     Dosage: 22.5 MG, DAILY (1/D)
     Route: 048
     Dates: start: 20090330, end: 20090427
  40. ACTOS /SCH/ [Concomitant]
     Dosage: 30 MG, DAILY (1/D)
     Route: 048
     Dates: start: 20090427, end: 20100413
  41. SIMVASTATIN [Concomitant]
     Dosage: 40 MG, DAILY (1/D)
     Route: 048
     Dates: start: 20091026, end: 20100413
  42. OMEPRAZOLE [Concomitant]
     Dosage: 20 MG, EACH MORNING
     Route: 048
     Dates: start: 20090928
  43. BENICAR [Concomitant]
     Dosage: 40 MG, DAILY (1/D)
     Route: 048
     Dates: start: 20060606
  44. METOLAZONE [Concomitant]
     Dosage: 2.5 MG, EACH MORNING
     Route: 048
     Dates: start: 20080212, end: 20100520
  45. GABAPENTIN [Concomitant]
     Dosage: UNK, 2/D
     Route: 048
     Dates: start: 20080408, end: 20100413
  46. B100 [Concomitant]
     Dosage: 1 D/F, DAILY (1/D)
     Route: 048
     Dates: start: 20081027, end: 20100423
  47. CHOLECALCIFEROL [Concomitant]
     Dosage: 2000 U, DAILY (1/D)
     Route: 048
     Dates: start: 20081027
  48. GLIMEPIRIDE [Concomitant]
     Dosage: 1 MG, DAILY (1/D)
     Route: 048
     Dates: start: 20090427, end: 20090526
  49. GLIMEPIRIDE [Concomitant]
     Dosage: 2 MG, DAILY (1/D)
     Route: 048
     Dates: start: 20090526, end: 20090928
  50. GLIMEPIRIDE [Concomitant]
     Dosage: 1 MG, DAILY (1/D)
     Route: 048
     Dates: start: 20090928, end: 20091207
  51. GLIMEPIRIDE [Concomitant]
     Dosage: 2 MG, DAILY (1/D)
     Route: 048
     Dates: start: 20091207, end: 20100203
  52. GLIMEPIRIDE [Concomitant]
     Dosage: 4 MG, DAILY (1/D)
     Route: 048
     Dates: start: 20100203, end: 20100419
  53. RECLAST [Concomitant]
     Dates: start: 20090828
  54. AMLODIPINE BESYLATE [Concomitant]
     Dosage: 5 MG, EACH MORNING
     Route: 048
     Dates: start: 20091214, end: 20100308
  55. AMLODIPINE BESYLATE [Concomitant]
     Dosage: 10 MG, EACH MORNING
     Route: 048
     Dates: start: 20100308
  56. PRAVASTATIN SODIUM [Concomitant]
     Dosage: 40 MG, DAILY (1/D)
     Route: 048
     Dates: start: 20070227, end: 20080812
  57. PRAVASTATIN SODIUM [Concomitant]
     Dosage: 80 MG, DAILY (1/D)
     Route: 048
     Dates: start: 20080812
  58. TYLENOL (CAPLET) [Concomitant]
     Dosage: 650 MG, UNK
     Dates: start: 20041117
  59. COUMADIN [Concomitant]
     Dates: start: 20010906

REACTIONS (11)
  - ABDOMINAL DISTENSION [None]
  - BLOOD GLUCOSE INCREASED [None]
  - CHOLANGITIS [None]
  - CHOLELITHIASIS [None]
  - CONSTIPATION [None]
  - DIARRHOEA [None]
  - FATIGUE [None]
  - HAEMOBILIA [None]
  - INFECTION [None]
  - NAUSEA [None]
  - SPLENOMEGALY [None]
